FAERS Safety Report 4795459-4 (Version None)
Quarter: 2005Q4

REPORT INFORMATION
  Report Type: 
  Country: None (occurrence: None)
  Receive Date: 20051006
  Receipt Date: 20050922
  Transmission Date: 20060501
  Serious: Yes (Disabling)
  Sender: FDA-Public Use
  Company Number: HQWYE607122SEP05

PATIENT
  Age: 71 Year
  Sex: Male

DRUGS (6)
  1. CORDARONE [Suspect]
     Dosage: 100 MG 1X PER 1 DAY ORAL
     Route: 048
     Dates: end: 20050822
  2. ATENOLOL [Suspect]
     Dosage: 50 MG 1X PER 1 DAY ORAL
     Route: 048
     Dates: end: 20050822
  3. FRUMIL (AMILORIDE HYDROCHLORIDE/FUROSEMIDE) [Concomitant]
  4. FUROSEMIDE [Concomitant]
  5. RAMIPRIL [Concomitant]
  6. ASPIRIN [Concomitant]

REACTIONS (4)
  - ATRIAL FIBRILLATION [None]
  - ATRIOVENTRICULAR BLOCK FIRST DEGREE [None]
  - HEART RATE DECREASED [None]
  - HYPERKALAEMIA [None]
